FAERS Safety Report 9806959 (Version 3)
Quarter: 2015Q2

REPORT INFORMATION
  Report Type: Report from Study
  Country: NL (occurrence: NL)
  Receive Date: 20140109
  Receipt Date: 20150610
  Transmission Date: 20150821
  Serious: Yes (Hospitalization)
  Sender: FDA-Public Use
  Company Number: NL-ABBVIE-14P-114-1187618-00

PATIENT
  Age: 44 Year
  Sex: Female
  Weight: 75 kg

DRUGS (5)
  1. LUCRIN (LEUPRORELINE) [Suspect]
     Active Substance: LEUPROLIDE ACETATE
     Indication: ENDOMETRIOSIS
     Route: 058
     Dates: start: 2003, end: 2012
  2. IBUPROFEN. [Concomitant]
     Active Substance: IBUPROFEN
     Indication: PAIN
     Route: 048
  3. PARACETAMOL [Concomitant]
     Active Substance: ACETAMINOPHEN
     Indication: PAIN
     Dosage: 3 TIMES PER DAY
     Route: 048
  4. ENALAPRIL [Concomitant]
     Active Substance: ENALAPRIL
     Indication: BLOOD PRESSURE DECREASED
     Route: 048
     Dates: start: 2003
  5. LUCRIN (LEUPRORELINE) [Suspect]
     Active Substance: LEUPROLIDE ACETATE
     Route: 058
     Dates: start: 20130419

REACTIONS (13)
  - Arthralgia [Unknown]
  - Oophorectomy [Unknown]
  - Vesicoureteral reflux surgery [Unknown]
  - Vomiting [Not Recovered/Not Resolved]
  - Cartilage atrophy [Unknown]
  - Enterostomy [Unknown]
  - Hysterectomy [Unknown]
  - Influenza like illness [Not Recovered/Not Resolved]
  - Ovarian cyst [Not Recovered/Not Resolved]
  - Nausea [Not Recovered/Not Resolved]
  - Headache [Not Recovered/Not Resolved]
  - Haemorrhage [Not Recovered/Not Resolved]
  - Hot flush [Not Recovered/Not Resolved]

NARRATIVE: CASE EVENT DATE: 2007
